FAERS Safety Report 9116819 (Version 9)
Quarter: 2013Q3

REPORT INFORMATION
  Report Type: Report from Study
  Country: US (occurrence: US)
  Receive Date: 20130225
  Receipt Date: 20130918
  Transmission Date: 20140515
  Serious: Yes (Hospitalization)
  Sender: FDA-Public Use
  Company Number: US-JNJFOC-20130210515

PATIENT
  Age: 15 Year
  Sex: Male
  Weight: 36.8 kg

DRUGS (13)
  1. REMICADE [Suspect]
     Indication: CROHN^S DISEASE
     Route: 042
     Dates: start: 20130222
  2. REMICADE [Suspect]
     Indication: CROHN^S DISEASE
     Route: 042
     Dates: start: 20121221
  3. REMICADE [Suspect]
     Indication: CROHN^S DISEASE
     Route: 042
     Dates: start: 20121025
  4. REMICADE [Suspect]
     Indication: CROHN^S DISEASE
     Route: 042
     Dates: start: 20120529
  5. REMICADE [Suspect]
     Indication: CROHN^S DISEASE
     Route: 042
     Dates: start: 201301
  6. ANTIBIOTICS [Concomitant]
     Indication: INFLAMMATORY BOWEL DISEASE
  7. PREDNISONE [Concomitant]
  8. AMITRIPTYLINE [Concomitant]
  9. ATIVAN [Concomitant]
  10. HYOSCYAMINE [Concomitant]
  11. OXYCODONE [Concomitant]
  12. AUGMENTIN (AMOXICILLIN/CLAVULANATE) [Concomitant]
     Route: 065
  13. VALIUM [Concomitant]
     Route: 065

REACTIONS (4)
  - Anal abscess [Recovered/Resolved]
  - Fistula [Recovered/Resolved]
  - Muscle flap operation [Recovered/Resolved]
  - Fistula [Recovered/Resolved]
